FAERS Safety Report 11650137 (Version 1)
Quarter: 2015Q4

REPORT INFORMATION
  Report Type: Other
  Country: BR (occurrence: BR)
  Receive Date: 20151021
  Receipt Date: 20151021
  Transmission Date: 20160304
  Serious: Yes (Hospitalization, Other)
  Sender: FDA-Public Use
  Company Number: BR-SHIRE-BR201512891

PATIENT
  Sex: Male
  Weight: 24 kg

DRUGS (1)
  1. ELAPRASE [Suspect]
     Active Substance: IDURSULFASE
     Indication: MUCOPOLYSACCHARIDOSIS II
     Dosage: 12 MG, 1X/WEEK, 2 VIALS
     Route: 041
     Dates: start: 2012

REACTIONS (3)
  - Bronchomalacia [Unknown]
  - Respiratory distress [Recovering/Resolving]
  - Tracheomalacia [Unknown]

NARRATIVE: CASE EVENT DATE: 2014
